FAERS Safety Report 8119712-1 (Version None)
Quarter: 2012Q1

REPORT INFORMATION
  Report Type: 
  Country: None (occurrence: None)
  Receive Date: 20120207
  Receipt Date: 20120203
  Transmission Date: 20120608
  Serious: Yes (Death, Other)
  Sender: FDA-Public Use
  Company Number: PHHY2011JP81253

PATIENT
  Sex: Female

DRUGS (12)
  1. MOBIC [Concomitant]
     Indication: METASTATIC RENAL CELL CARCINOMA
     Dosage: 10 MG, UNK
     Route: 048
     Dates: start: 20110510
  2. OXYCONTIN [Concomitant]
     Indication: METASTATIC RENAL CELL CARCINOMA
     Dosage: 50 MG, UNK
     Route: 048
     Dates: start: 20110510
  3. PRIMPERAN TAB [Concomitant]
     Indication: METASTATIC RENAL CELL CARCINOMA
     Dosage: 5 MG, UNK
     Route: 048
     Dates: start: 20110510
  4. AFINITOR [Suspect]
     Indication: METASTATIC RENAL CELL CARCINOMA
     Dosage: 10 MG, DAILY
     Route: 048
     Dates: start: 20110510, end: 20110620
  5. ADJUST-A [Concomitant]
     Dosage: 40 MG, UNK
     Route: 048
     Dates: start: 20110510
  6. MAGNESIUM SULFATE [Concomitant]
     Dosage: 990 MG, UNK
     Route: 048
     Dates: start: 20110510
  7. BETAMETHASONE [Concomitant]
     Indication: METASTATIC RENAL CELL CARCINOMA
     Dosage: 4 MG, UNK
     Dates: start: 20110629
  8. TEGRETOL [Concomitant]
     Indication: METASTATIC RENAL CELL CARCINOMA
     Dosage: 200 MG, UNK
     Route: 048
     Dates: start: 20110510
  9. FENTANYL CITRATE [Concomitant]
     Indication: METASTATIC RENAL CELL CARCINOMA
     Dosage: 2 MG, TID
     Route: 048
     Dates: start: 20110620
  10. LENDORMIN [Concomitant]
     Dosage: 0.25 MG, UNK
     Route: 048
     Dates: start: 20110510
  11. PRIMPERAN TAB [Concomitant]
     Dosage: 50 MEQ/KG, UNK
     Route: 048
  12. NORVASC [Concomitant]
     Dosage: 5 MG, UNK
     Route: 048
     Dates: start: 20110510

REACTIONS (3)
  - NEOPLASM MALIGNANT [None]
  - BLOOD LACTATE DEHYDROGENASE INCREASED [None]
  - NEOPLASM PROGRESSION [None]
